FAERS Safety Report 8776177 (Version 2)
Quarter: 2012Q4

REPORT INFORMATION
  Report Type: Report from Study
  Country: FR (occurrence: FR)
  Receive Date: 20120910
  Receipt Date: 20121116
  Transmission Date: 20130627
  Serious: No
  Sender: FDA-Public Use
  Company Number: FR-INCYTE CORPORATION-2012IN001684

PATIENT
  Sex: Male

DRUGS (4)
  1. INC424 [Suspect]
     Indication: MYELOFIBROSIS
     Dosage: UNK
     Route: 065
     Dates: start: 20110907, end: 201203
  2. INC424 [Suspect]
     Dosage: 5 mg, bid
     Dates: start: 201203
  3. CORTANCYL [Concomitant]
  4. GRANOCYTE [Concomitant]
     Dosage: UNK

REACTIONS (1)
  - Pancytopenia [Not Recovered/Not Resolved]
